FAERS Safety Report 22321004 (Version 1)
Quarter: 2023Q2

REPORT INFORMATION
  Report Type: Spontaneous
  Country: US (occurrence: None)
  Receive Date: 20230512
  Receipt Date: 20230512
  Transmission Date: 20230722
  Serious: Yes (Hospitalization)
  Sender: FDA-Public Use
  Company Number: None

PATIENT
  Sex: Male

DRUGS (1)
  1. UDENYCA [Suspect]
     Active Substance: PEGFILGRASTIM-CBQV
     Indication: Acute lymphocytic leukaemia
     Dosage: 2.5 MG EVERY 21 DAYS SC?
     Route: 058
     Dates: start: 202302

REACTIONS (1)
  - Pyrexia [None]
